FAERS Safety Report 9632841 (Version 2)
Quarter: 2013Q4

REPORT INFORMATION
  Report Type: Spontaneous
  Country: US (occurrence: US)
  Receive Date: 20131018
  Receipt Date: 20131018
  Transmission Date: 20140711
  Serious: No
  Sender: FDA-Public Use
  Company Number: US-ASTRAZENECA-2013SE65258

PATIENT
  Age: 88 Year
  Sex: Male
  Weight: 97.1 kg

DRUGS (4)
  1. CRESTOR [Suspect]
     Indication: CORONARY ARTERY DISEASE
     Route: 048
     Dates: start: 20090810, end: 20130820
  2. CRESTOR [Suspect]
     Indication: DYSLIPIDAEMIA
     Route: 048
     Dates: start: 20090810, end: 20130820
  3. NIASPAN [Concomitant]
     Indication: CORONARY ARTERY DISEASE
  4. NIASPAN [Concomitant]
     Indication: DYSLIPIDAEMIA

REACTIONS (3)
  - Hypoacusis [Not Recovered/Not Resolved]
  - Alanine aminotransferase increased [Recovered/Resolved]
  - Aspartate aminotransferase increased [Recovered/Resolved]
